FAERS Safety Report 9126563 (Version 3)
Quarter: 2013Q3

REPORT INFORMATION
  Report Type: Spontaneous
  Country: US (occurrence: US)
  Receive Date: 20130117
  Receipt Date: 20130702
  Transmission Date: 20140515
  Serious: Yes (Hospitalization)
  Sender: FDA-Public Use
  Company Number: US-BAYER-2013-006168

PATIENT
  Age: 41 Year
  Sex: Female
  Weight: 130 kg

DRUGS (12)
  1. YASMIN [Suspect]
     Dosage: UNK
     Dates: start: 200511, end: 200911
  2. OCELLA [Suspect]
     Dosage: UNK
     Dates: start: 200511, end: 200911
  3. CLARITIN-D [Concomitant]
     Dosage: 1 DF, BID
     Route: 048
  4. HYPNOTICS AND SEDATIVES [Concomitant]
     Dosage: AT BED TIME
  5. GARLIC [Concomitant]
  6. FISH OIL [Concomitant]
  7. MULTIVITAMINS [Concomitant]
  8. RANITIDINE [Concomitant]
     Dosage: UNK UNK, PRN
  9. FLUCONAZOLE [Concomitant]
     Dosage: 150 MG,TAKE ONE TODAY
     Route: 048
     Dates: start: 20091111
  10. FLUTICASONE [Concomitant]
     Dosage: UNK
     Dates: start: 200204
  11. FEXOFENADINE [Concomitant]
     Dosage: UNK
     Dates: start: 200204
  12. PROTONIX [Concomitant]
     Dosage: UNK
     Dates: start: 200204

REACTIONS (8)
  - Pulmonary embolism [None]
  - Pulmonary infarction [None]
  - Injury [None]
  - Pain [None]
  - General physical health deterioration [None]
  - Anxiety [None]
  - Emotional distress [None]
  - Pain [None]
